FAERS Safety Report 16608360 (Version 1)
Quarter: 2019Q3

REPORT INFORMATION
  Report Type: Spontaneous
  Country: US (occurrence: US)
  Receive Date: 20190722
  Receipt Date: 20190722
  Transmission Date: 20191004
  Serious: Yes (Other)
  Sender: FDA-Public Use
  Company Number: US-BAYER-2019-130313

PATIENT
  Sex: Male

DRUGS (1)
  1. COPPERTONE KIDS SPF 50 [Suspect]
     Active Substance: OCTINOXATE\OCTISALATE\ZINC OXIDE

REACTIONS (1)
  - Sunburn [Unknown]
